FAERS Safety Report 10400875 (Version 1)
Quarter: 2014Q3

REPORT INFORMATION
  Report Type: Spontaneous
  Country: US (occurrence: US)
  Receive Date: 20140821
  Receipt Date: 20140821
  Transmission Date: 20150326
  Serious: No
  Sender: FDA-Public Use
  Company Number: US-ASTRAZENECA-2014SE31368

PATIENT
  Age: 36 Year
  Sex: Female
  Weight: 86.2 kg

DRUGS (2)
  1. PULMICORT FLEXHALER [Suspect]
     Active Substance: BUDESONIDE
     Indication: ASTHMA
     Route: 055
  2. SYMBICORT [Suspect]
     Active Substance: BUDESONIDE\FORMOTEROL FUMARATE DIHYDRATE
     Indication: ASTHMA
     Dosage: 2 PUFFS BID
     Route: 055
     Dates: start: 201404

REACTIONS (8)
  - Disorientation [Recovered/Resolved]
  - Grip strength decreased [Recovered/Resolved]
  - Tremor [Recovered/Resolved]
  - Device misuse [Recovering/Resolving]
  - Adverse event [Unknown]
  - Dizziness [Recovered/Resolved]
  - Intentional product misuse [Unknown]
  - Hyperhidrosis [Recovered/Resolved]
